FAERS Safety Report 12776385 (Version 2)
Quarter: 2016Q3

REPORT INFORMATION
  Report Type: Spontaneous
  Country: FR (occurrence: FR)
  Receive Date: 20160923
  Receipt Date: 20160930
  Transmission Date: 20161109
  Serious: Yes (Other)
  Sender: FDA-Public Use
  Company Number: PHHY2016FR130069

PATIENT
  Age: 67 Year
  Sex: Female

DRUGS (3)
  1. PREVISCAN [Concomitant]
     Active Substance: FLUINDIONE
     Indication: THROMBOSIS PROPHYLAXIS
     Dosage: 0.5 DF, QD
     Route: 048
     Dates: end: 20160910
  2. PREVISCAN [Concomitant]
     Active Substance: FLUINDIONE
     Dosage: 0.25 DF, QD
     Route: 048
     Dates: start: 20160910
  3. ACLASTA [Suspect]
     Active Substance: ZOLEDRONIC ACID
     Indication: OSTEOPOROSIS
     Dosage: 5 MG, UNK
     Route: 042
     Dates: start: 20160909

REACTIONS (8)
  - International normalised ratio increased [Recovered/Resolved]
  - Haemophilia [Recovered/Resolved]
  - Pyrexia [Recovered/Resolved]
  - Diabetes mellitus [Not Recovered/Not Resolved]
  - Fatigue [Recovered/Resolved]
  - Influenza like illness [Recovered/Resolved]
  - Nausea [Recovered/Resolved]
  - Vomiting [Recovered/Resolved]

NARRATIVE: CASE EVENT DATE: 20160910
